FAERS Safety Report 9837624 (Version 1)
Quarter: 2014Q1

REPORT INFORMATION
  Report Type: Spontaneous
  Country: US (occurrence: US)
  Receive Date: 20140123
  Receipt Date: 20140123
  Transmission Date: 20141002
  Serious: No
  Sender: FDA-Public Use
  Company Number: US-BAYER-2014-011479

PATIENT
  Age: 3 Year
  Sex: Male
  Weight: 19.05 kg

DRUGS (1)
  1. ALEVE CAPLET [Suspect]
     Dosage: UNK UNK, ONCE
     Route: 048
     Dates: start: 20140118, end: 20140118

REACTIONS (1)
  - Accidental exposure to product by child [None]
